FAERS Safety Report 17386740 (Version 2)
Quarter: 2020Q1

REPORT INFORMATION
  Report Type: Report from Study
  Country: GB (occurrence: GB)
  Receive Date: 20200206
  Receipt Date: 20200218
  Transmission Date: 20200409
  Serious: Yes (Death, Other)
  Sender: FDA-Public Use
  Company Number: GB-CELGENEUS-GBR-20200111005

PATIENT
  Age: 84 Year
  Sex: Female

DRUGS (3)
  1. DEXAMETHASONE. [Concomitant]
     Active Substance: DEXAMETHASONE
     Indication: PEYRONIE^S DISEASE
     Route: 065
     Dates: start: 201406, end: 201906
  2. REVLIMID [Suspect]
     Active Substance: LENALIDOMIDE
     Indication: PEYRONIE^S DISEASE
  3. REVLIMID [Suspect]
     Active Substance: LENALIDOMIDE
     Indication: PLASMA CELL MYELOMA
     Route: 048
     Dates: start: 201406, end: 201906

REACTIONS (1)
  - Acute lymphocytic leukaemia [Fatal]

NARRATIVE: CASE EVENT DATE: 20190522
